FAERS Safety Report 17016182 (Version 1)
Quarter: 2019Q4

REPORT INFORMATION
  Report Type: Spontaneous
  Country: US (occurrence: US)
  Receive Date: 20191111
  Receipt Date: 20191111
  Transmission Date: 20200122
  Serious: No
  Sender: FDA-Public Use
  Company Number: US-PFIZER INC-2019478261

PATIENT
  Age: 75 Year

DRUGS (1)
  1. LEVOXYL [Suspect]
     Active Substance: LEVOTHYROXINE SODIUM
     Indication: BLOOD THYROID STIMULATING HORMONE ABNORMAL
     Dosage: 0.025 MG, UNK

REACTIONS (1)
  - Drug ineffective [Not Recovered/Not Resolved]
